FAERS Safety Report 5214912-2 (Version None)
Quarter: 2007Q1

REPORT INFORMATION
  Report Type: 
  Country: None (occurrence: None)
  Receive Date: 20061108
  Receipt Date: 20060522
  Transmission Date: 20070707
  Serious: Yes (Other)
  Sender: FDA-Public Use
  Company Number: PHEH2006US06680

PATIENT
  Age: 47 Year
  Sex: Female

DRUGS (1)
  1. ESTRADERM [Suspect]
     Indication: MENOPAUSAL SYMPTOMS
     Dosage: TRANSDERMAL
     Route: 062
     Dates: start: 19990101

REACTIONS (1)
  - BREAST CANCER [None]
